FAERS Safety Report 8085453-2 (Version None)
Quarter: 2012Q1

REPORT INFORMATION
  Report Type: 
  Country: None (occurrence: None)
  Receive Date: 20120128
  Receipt Date: 20110405
  Transmission Date: 20120608
  Serious: No
  Sender: FDA-Public Use
  Company Number: US-ABBOTT-11P-163-0703198-00

PATIENT
  Sex: Female

DRUGS (9)
  1. PROTOINC [Concomitant]
     Indication: PRODUCT USED FOR UNKNOWN INDICATION
     Dosage: 40MG DAILY PRN
  2. HUMIRA [Suspect]
     Indication: PSORIASIS
     Route: 058
     Dates: start: 20110127
  3. METHOTREXATE [Concomitant]
     Indication: PRODUCT USED FOR UNKNOWN INDICATION
  4. LASIX [Concomitant]
     Indication: PRODUCT USED FOR UNKNOWN INDICATION
     Dosage: 20 MG 1-2 DAILY
     Route: 048
  5. ATENOLOL [Concomitant]
     Indication: PRODUCT USED FOR UNKNOWN INDICATION
     Dosage: 50 MG DAILY
     Route: 048
  6. TENORMIN [Concomitant]
     Indication: HYPERTENSION
     Route: 048
  7. PROTOPIC [Concomitant]
     Indication: PSORIASIS
  8. COLCHICINE [Concomitant]
  9. COLCHICINE [Concomitant]
     Indication: URTICARIA

REACTIONS (5)
  - INJECTION SITE SWELLING [None]
  - WOUND HAEMORRHAGE [None]
  - OPEN WOUND [None]
  - INJECTION SITE PAIN [None]
  - VISION BLURRED [None]
